FAERS Safety Report 10062432 (Version 4)
Quarter: 2014Q2

REPORT INFORMATION
  Report Type: Spontaneous
  Country: US (occurrence: US)
  Receive Date: 20140407
  Receipt Date: 20140612
  Transmission Date: 20141212
  Serious: No
  Sender: FDA-Public Use
  Company Number: US-PFIZER INC-2014095517

PATIENT
  Age: 17 Year
  Sex: Male

DRUGS (4)
  1. SOLU-MEDROL [Suspect]
     Indication: ANAPHYLACTIC REACTION
     Dosage: 125 MG, ONE DOSE
     Route: 042
     Dates: start: 20120918, end: 20120918
  2. SOLU-MEDROL [Suspect]
     Indication: ILL-DEFINED DISORDER
  3. BENADRYL [Concomitant]
     Dosage: 50 MG, ONE DOSE
     Dates: start: 20120918, end: 20120918
  4. PEPCID [Concomitant]
     Dosage: 20 (UNITS UNSPECIFIED), ONE DOSE
     Dates: start: 20120918, end: 20120918

REACTIONS (6)
  - Psychiatric symptom [Unknown]
  - Swelling face [Unknown]
  - Aggression [Unknown]
  - Personality change [Unknown]
  - Irritability [Recovered/Resolved]
  - Mood altered [Recovered/Resolved]
